FAERS Safety Report 5891561-4 (Version None)
Quarter: 2008Q3

REPORT INFORMATION
  Report Type: 
  Country: None (occurrence: None)
  Receive Date: 20080922
  Receipt Date: 20070615
  Transmission Date: 20090109
  Serious: Yes (Hospitalization)
  Sender: FDA-Public Use
  Company Number: IT-ROCHE-571244

PATIENT
  Sex: Male
  Weight: 84 kg

DRUGS (2)
  1. PEGASYS [Suspect]
     Dosage: STRENGTH REPORTED AS 180.
     Route: 065
     Dates: start: 20060915, end: 20070518
  2. RIBAVIRIN [Suspect]
     Dosage: DOSE REPORTED AS 1000.
     Route: 065
     Dates: start: 20060915, end: 20070518

REACTIONS (5)
  - ANOREXIA [None]
  - ASTHENIA [None]
  - DYSPNOEA [None]
  - INFLAMMATION [None]
  - PYREXIA [None]
